FAERS Safety Report 4368774-6 (Version None)
Quarter: 2004Q2

REPORT INFORMATION
  Report Type: 
  Country: None (occurrence: None)
  Receive Date: 20040525
  Receipt Date: 20040510
  Transmission Date: 20050107
  Serious: No
  Sender: FDA-Public Use
  Company Number: 2004AP02587

PATIENT
  Age: 58 Year
  Sex: Female

DRUGS (1)
  1. SEROQUEL [Suspect]
     Dosage: 50 MG DAILY PO
     Route: 048
     Dates: start: 20040422, end: 20040422

REACTIONS (2)
  - BLOOD PRESSURE DECREASED [None]
  - LOSS OF CONSCIOUSNESS [None]
